FAERS Safety Report 9648818 (Version 1)
Quarter: 2013Q4

REPORT INFORMATION
  Report Type: Spontaneous
  Country: US (occurrence: None)
  Receive Date: 20131025
  Receipt Date: 20131025
  Transmission Date: 20140711
  Serious: Yes (Hospitalization)
  Sender: FDA-Public Use
  Company Number: None

PATIENT
  Age: 56 Year
  Sex: Male
  Weight: 91 kg

DRUGS (12)
  1. INSULIN GLARGINE [Suspect]
     Dates: start: 20110701, end: 20110701
  2. ACYCLOVIR [Concomitant]
  3. AZATHIOPRINE [Concomitant]
  4. INSULIN ASPART [Concomitant]
  5. LANSOPRAZOLE [Concomitant]
  6. METOPROLOL [Concomitant]
  7. NYSTATIN [Concomitant]
  8. OXYCODONE [Concomitant]
  9. PREDNISONE [Concomitant]
  10. BACTRIM [Concomitant]
  11. GLUCYTOSINE [Concomitant]
  12. HEPARIN [Concomitant]

REACTIONS (4)
  - Mental status changes [None]
  - Hypoglycaemia [None]
  - Wrong patient received medication [None]
  - Drug dispensed to wrong patient [None]
